FAERS Safety Report 13740190 (Version 1)
Quarter: 2017Q3

REPORT INFORMATION
  Report Type: Spontaneous
  Country: NL (occurrence: NL)
  Receive Date: 20170711
  Receipt Date: 20170711
  Transmission Date: 20171127
  Serious: Yes (Hospitalization, Other)
  Sender: FDA-Public Use
  Company Number: NL-AMGEN-NLDSP2017102124

PATIENT
  Age: 80 Year
  Sex: Female
  Weight: 75 kg

DRUGS (10)
  1. BUMETANIDE. [Concomitant]
     Active Substance: BUMETANIDE
     Dosage: 1 MG, 1 TIMES QD
     Route: 048
     Dates: start: 20151217
  2. PARACETAMOL [Concomitant]
     Active Substance: ACETAMINOPHEN
     Dosage: 1000 MG, WHEN NEEDED 4QD
     Route: 048
     Dates: start: 20151217
  3. ACENOCOUMAROL [Concomitant]
     Active Substance: ACENOCOUMAROL
     Dosage: 1 MG, 1 DF (ACCORIDING TO PRESCRIPTION)
     Route: 048
     Dates: start: 20151217
  4. TAMOXIFEN [Concomitant]
     Active Substance: TAMOXIFEN
     Dosage: 40 MG, 1 TIME QD
     Route: 048
     Dates: start: 20151217
  5. PERINDOPRIL [Concomitant]
     Active Substance: PERINDOPRIL
     Dosage: 8 MG, 1 TIMES QD
     Route: 048
     Dates: start: 20151217
  6. XGEVA [Suspect]
     Active Substance: DENOSUMAB
     Indication: METASTASES TO BONE
     Dosage: 120 MG/1.70ML, Q4WK, 1DF
     Route: 065
     Dates: start: 2015
  7. NIFEDIPINE. [Concomitant]
     Active Substance: NIFEDIPINE
     Dosage: 30 MG, 1 TIMES QD
     Route: 048
     Dates: start: 20151217
  8. CAD [Concomitant]
     Active Substance: CALCIUM CARBONATE\CHOLECALCIFEROL
     Dosage: 1000 MG/880IE (CITROEN BRUISGRANULAAT), QD
     Dates: start: 20151217
  9. BISOPROLOL [Concomitant]
     Active Substance: BISOPROLOL
     Dosage: 10 MG, 1 TIMES PER QD
     Route: 048
     Dates: start: 20151217
  10. MIRTAZAPINE. [Concomitant]
     Active Substance: MIRTAZAPINE
     Dosage: 30 MG, 1 TIMES QD
     Route: 048
     Dates: start: 20151217

REACTIONS (1)
  - Osteonecrosis of jaw [Unknown]

NARRATIVE: CASE EVENT DATE: 20170629
